FAERS Safety Report 10057901 (Version 1)
Quarter: 2014Q2

REPORT INFORMATION
  Report Type: Spontaneous
  Country: US (occurrence: None)
  Receive Date: 20140403
  Receipt Date: 20140403
  Transmission Date: 20141212
  Serious: Yes (Other)
  Sender: FDA-Public Use
  Company Number: None

PATIENT
  Age: 54 Year
  Sex: Female

DRUGS (2)
  1. ALPRAZOLAM [Suspect]
     Indication: GENERALISED ANXIETY DISORDER
     Dates: start: 201203
  2. ALPRAZOLAM [Suspect]
     Indication: PANIC DISORDER
     Dates: start: 201203

REACTIONS (3)
  - Drug ineffective [None]
  - Panic attack [None]
  - Product substitution issue [None]
